FAERS Safety Report 4934010-2 (Version None)
Quarter: 2006Q1

REPORT INFORMATION
  Report Type: 
  Country: None (occurrence: None)
  Receive Date: 20060303
  Receipt Date: 20060216
  Transmission Date: 20060701
  Serious: Yes (Hospitalization)
  Sender: FDA-Public Use
  Company Number: 221579

PATIENT
  Age: 30 Year
  Sex: Male

DRUGS (1)
  1. RAPTIVA [Suspect]
     Indication: PSORIASIS
     Dosage: 180 MG, 1/WEEK, SUBCUTANEOUS
     Route: 058
     Dates: start: 20041104

REACTIONS (6)
  - ANAEMIA [None]
  - CONDITION AGGRAVATED [None]
  - HAEMATURIA [None]
  - LABORATORY TEST ABNORMAL [None]
  - PSORIASIS [None]
  - WHITE BLOOD CELL COUNT DECREASED [None]
